FAERS Safety Report 22075427 (Version 1)
Quarter: 2023Q1

REPORT INFORMATION
  Report Type: Spontaneous
  Country: US (occurrence: None)
  Receive Date: 20230307
  Receipt Date: 20230307
  Transmission Date: 20230417
  Serious: Yes (Hospitalization)
  Sender: FDA-Public Use
  Company Number: None

PATIENT
  Age: 86 Year
  Sex: Male

DRUGS (1)
  1. ODOMZO [Suspect]
     Active Substance: SONIDEGIB
     Dosage: FREQUENCY : DAILY;?
     Route: 048

REACTIONS (2)
  - Weight decreased [None]
  - Oedema peripheral [None]

NARRATIVE: CASE EVENT DATE: 20230307
